FAERS Safety Report 6283922-9 (Version None)
Quarter: 2009Q3

REPORT INFORMATION
  Report Type: 
  Country: None (occurrence: None)
  Receive Date: 20090722
  Receipt Date: 20090722
  Transmission Date: 20100115
  Serious: Yes (Life-Threatening, Other)
  Sender: FDA-Public Use
  Company Number: None

PATIENT
  Age: 70 Year
  Sex: Male
  Weight: 63.5036 kg

DRUGS (1)
  1. CHANTIX [Suspect]
     Indication: SMOKING CESSATION THERAPY
     Dosage: 1 MG 2 X DAY
     Dates: start: 20090710, end: 20090717

REACTIONS (4)
  - ABNORMAL DREAMS [None]
  - ASTHENIA [None]
  - MOBILITY DECREASED [None]
  - SOMNOLENCE [None]
